FAERS Safety Report 15718754 (Version 1)
Quarter: 2018Q4

REPORT INFORMATION
  Report Type: Spontaneous
  Country: US (occurrence: US)
  Receive Date: 20181213
  Receipt Date: 20181213
  Transmission Date: 20190205
  Serious: No
  Sender: FDA-Public Use
  Company Number: US-GLAXOSMITHKLINE-US2018GSK222811

PATIENT
  Age: 65 Year
  Sex: Female
  Weight: 76.19 kg

DRUGS (1)
  1. WELLBUTRIN XL [Suspect]
     Active Substance: BUPROPION HYDROCHLORIDE
     Indication: DEPRESSION
     Dosage: 450 MG, QD
     Route: 048

REACTIONS (5)
  - Vomiting [Recovering/Resolving]
  - Incorrect dose administered [Not Recovered/Not Resolved]
  - Product use issue [Unknown]
  - Nausea [Recovering/Resolving]
  - Accidental overdose [Recovered/Resolved]

NARRATIVE: CASE EVENT DATE: 20181129
